FAERS Safety Report 4842657-7 (Version None)
Quarter: 2005Q4

REPORT INFORMATION
  Report Type: 
  Country: None (occurrence: None)
  Receive Date: 20051201
  Receipt Date: 20051122
  Transmission Date: 20060501
  Serious: Yes (Hospitalization)
  Sender: FDA-Public Use
  Company Number: FR-BOEHRINGER INGELHEIM PHARMACEUTICALS, INC.-2005-FF-00848FF

PATIENT
  Age: 84 Year
  Sex: Female

DRUGS (5)
  1. PERSANTINE [Suspect]
     Route: 048
  2. NORSET [Concomitant]
     Route: 048
     Dates: end: 20050429
  3. EXELON [Concomitant]
     Dates: start: 19990101, end: 20050429
  4. EBIXA [Concomitant]
     Route: 048
     Dates: end: 20050429
  5. DEROXAT [Concomitant]
     Route: 048

REACTIONS (3)
  - CONFUSIONAL STATE [None]
  - FALL [None]
  - ORTHOSTATIC HYPOTENSION [None]
